FAERS Safety Report 8869826 (Version 1)
Quarter: 2012Q4

REPORT INFORMATION
  Report Type: 
  Country: US (occurrence: US)
  Receive Date: 20121026
  Receipt Date: 20121026
  Transmission Date: 20130627
  Serious: No
  Sender: FDA-Public Use
  Company Number: US-AMGEN-USASP2012044099

PATIENT
  Age: 61 Year
  Sex: Female
  Weight: 63.49 kg

DRUGS (10)
  1. ENBREL [Suspect]
     Indication: PRODUCT USED FOR UNKNOWN INDICATION
     Dosage: 50 mg, qwk
     Route: 058
  2. LEVOTHYROXIN [Concomitant]
     Dosage: 88 mug, UNK
  3. LASIX                              /00032601/ [Concomitant]
     Dosage: 20 mg, UNK
  4. POTASSIUM [Concomitant]
     Dosage: 75 mg, UNK
  5. CENTRUM SILVER                     /01292501/ [Concomitant]
     Dosage: UNK
  6. LEFLUNOMIDE [Concomitant]
     Dosage: 10 mg, UNK
  7. QUESTRAN [Concomitant]
     Dosage: 4 g, UNK
  8. ADVIL                              /00044201/ [Concomitant]
     Dosage: 200 mg, UNK
  9. ASPIRIN [Concomitant]
     Dosage: 81 mg, UNK
  10. TYLENOL /00020001/ [Concomitant]
     Dosage: 325 mg, UNK

REACTIONS (3)
  - Injection site pruritus [Unknown]
  - Injection site erythema [Unknown]
  - Injection site swelling [Unknown]
